FAERS Safety Report 24829245 (Version 1)
Quarter: 2025Q1

REPORT INFORMATION
  Report Type: Spontaneous
  Country: PE (occurrence: PE)
  Receive Date: 20250110
  Receipt Date: 20250110
  Transmission Date: 20250409
  Serious: Yes (Other)
  Sender: KYOWA
  Company Number: PE-KYOWAKIRIN-2025KK000237

PATIENT

DRUGS (2)
  1. CRYSVITA [Suspect]
     Active Substance: BUROSUMAB-TWZA
     Indication: Hereditary hypophosphataemic rickets
     Dosage: 30 MILLIGRAM, EVERY FIFTEEN DAYS
     Route: 058
     Dates: start: 20231213
  2. CRYSVITA [Suspect]
     Active Substance: BUROSUMAB-TWZA
     Dosage: 30 MILLIGRAM, EVERY FIFTEEN DAYS
     Route: 058
     Dates: start: 20241223

REACTIONS (4)
  - Syncope [Recovered/Resolved]
  - Tinnitus [Recovered/Resolved]
  - Heart rate decreased [Recovered/Resolved]
  - Headache [Recovered/Resolved]

NARRATIVE: CASE EVENT DATE: 20241227
